FAERS Safety Report 8958435 (Version 1)
Quarter: 2013Q1

REPORT INFORMATION
  Report Type: Spontaneous
  Country: US (occurrence: None)
  Receive Date: 20121205
  Receipt Date: 20121205
  Transmission Date: 20140127
  Serious: Yes (Hospitalization)
  Sender: FDA-Public Use
  Company Number: None

PATIENT
  Age: 35 Year
  Sex: Female
  Weight: 95.26 kg

DRUGS (7)
  1. XANAX [Suspect]
  2. PHENERGAN [Suspect]
  3. HYDROXYZINE [Suspect]
  4. CELEXA [Concomitant]
  5. TOPAMAX [Concomitant]
  6. IRON [Concomitant]
  7. ZOFRAN [Concomitant]

REACTIONS (2)
  - Overdose [None]
  - Intentional self-injury [None]
